FAERS Safety Report 24581361 (Version 1)
Quarter: 2024Q4

REPORT INFORMATION
  Report Type: Spontaneous
  Country: US (occurrence: US)
  Receive Date: 20241105
  Receipt Date: 20241105
  Transmission Date: 20250115
  Serious: No
  Sender: EMD SERONO INC
  Company Number: US-Merck Healthcare KGaA-2024057607

PATIENT
  Age: 49 Year
  Sex: Female

DRUGS (1)
  1. MAVENCLAD [Suspect]
     Active Substance: CLADRIBINE
     Indication: Multiple sclerosis
     Dosage: FIRST YEAR, FIRST MONTH: TWO TABLETS (20 MG) ON DAYS 1 TO 4 AND ONE TABLET ON DAY 5 (10 MG)
     Dates: start: 20241021, end: 20241025

REACTIONS (1)
  - Headache [Recovered/Resolved]
